FAERS Safety Report 9628384 (Version 2)
Quarter: 2013Q4

REPORT INFORMATION
  Report Type: Spontaneous
  Country: IT (occurrence: IT)
  Receive Date: 20131017
  Receipt Date: 20131223
  Transmission Date: 20140711
  Serious: Yes (Hospitalization)
  Sender: FDA-Public Use
  Company Number: IT-SA-2013SA101765

PATIENT
  Age: 80 Year
  Sex: Female

DRUGS (8)
  1. KARVEA [Concomitant]
     Dosage: STRENGTH: 75 MG
  2. MADOPAR [Concomitant]
  3. TORVAST [Concomitant]
     Dosage: STRENGTH: 10 MG
  4. DELECIT [Concomitant]
     Dosage: STRENGTH: 400 MG
  5. EXEMESTANE [Concomitant]
     Dosage: STRENGTH: 25 MG
  6. LANTUS [Suspect]
     Indication: TYPE 2 DIABETES MELLITUS
     Route: 058
     Dates: start: 20130101
  7. HUMALOG [Suspect]
     Indication: TYPE 2 DIABETES MELLITUS
     Route: 058
     Dates: start: 20130101
  8. PENTOXIFYLLINE [Concomitant]

REACTIONS (2)
  - Psychomotor retardation [Recovering/Resolving]
  - Hypoglycaemia [Recovering/Resolving]
